FAERS Safety Report 9655269 (Version 1)
Quarter: 2013Q4

REPORT INFORMATION
  Report Type: Spontaneous
  Country: US (occurrence: US)
  Receive Date: 20131029
  Receipt Date: 20131029
  Transmission Date: 20140711
  Serious: Yes (Other)
  Sender: FDA-Public Use
  Company Number: US-NAPPMUNDI-USA-2012-0087447

PATIENT
  Sex: Male

DRUGS (5)
  1. OXYCONTIN (NDA 22-272) [Suspect]
     Indication: NEURALGIA
     Dosage: 20 MG, BID
  2. GABAPENTIN [Concomitant]
     Indication: PRODUCT USED FOR UNKNOWN INDICATION
     Dosage: 900 MG, TID
     Route: 048
  3. AMITIPTYLINE [Concomitant]
     Dosage: 75 MG, UNK
     Route: 048
  4. ETODOLAC [Concomitant]
     Dosage: 300 MG, TID
  5. OXYCODONE HCL TABLETS (91-490) [Concomitant]
     Indication: NEURALGIA
     Dosage: UNK, Q3H PRN

REACTIONS (3)
  - Drug dependence [Unknown]
  - Substance abuse [Unknown]
  - Drug effect decreased [Unknown]
